FAERS Safety Report 7472956-4 (Version None)
Quarter: 2011Q1

REPORT INFORMATION
  Report Type: 
  Country: None (occurrence: None)
  Receive Date: 20110302
  Receipt Date: 20101120
  Transmission Date: 20110831
  Serious: Yes (Hospitalization, Other)
  Sender: FDA-Public Use
  Company Number: 163-21880-10112594

PATIENT
  Age: 73 Year
  Sex: Male
  Weight: 111.5849 kg

DRUGS (25)
  1. REVLIMID [Suspect]
     Indication: MULTIPLE MYELOMA
     Dosage: 10 MG, 1 IN 1 D, PO
     Route: 048
     Dates: start: 20100505, end: 20100813
  2. OXYCONTIN [Concomitant]
  3. FISH OIL (FISH OIL) [Concomitant]
  4. ASCORBIC ACID [Concomitant]
  5. AREDIA [Concomitant]
  6. PERCOCET [Concomitant]
  7. TOPROL-XL [Concomitant]
  8. MYCOLOG (MYCOLOG) [Concomitant]
  9. DARVOCET [Concomitant]
  10. XANAX [Concomitant]
  11. LODINE [Concomitant]
  12. BORTEZOMIB [Concomitant]
  13. DEXAMETHASONE [Concomitant]
  14. ASPIRIN [Concomitant]
  15. GLYBURIDE [Concomitant]
  16. NEURONTIN [Concomitant]
  17. PRILOSEC [Concomitant]
  18. VITAMIN D [Concomitant]
  19. LASIX [Concomitant]
  20. GLUCOPHAGE [Concomitant]
  21. POTASSIUM CHLORIDE [Concomitant]
  22. COMPAZINE [Concomitant]
  23. VYTORIN [Concomitant]
  24. PRESERVISION (PRESERVISION LUTEIN EYE VITA. +MIN.SUP.SOFTG.) [Concomitant]
  25. VALTREX [Concomitant]

REACTIONS (7)
  - DISEASE PROGRESSION [None]
  - NEUROPATHY PERIPHERAL [None]
  - SPINAL CORD COMPRESSION [None]
  - FATIGUE [None]
  - POST HERPETIC NEURALGIA [None]
  - INSOMNIA [None]
  - CONSTIPATION [None]
